FAERS Safety Report 24027295 (Version 2)
Quarter: 2024Q3

REPORT INFORMATION
  Report Type: Report from Study
  Country: US (occurrence: US)
  Receive Date: 20240628
  Receipt Date: 20240718
  Transmission Date: 20241017
  Serious: Yes (Hospitalization, Other)
  Sender: GILEAD
  Company Number: US-GILEAD-2024-0678649

PATIENT
  Age: 37 Year
  Sex: Male

DRUGS (3)
  1. AMBRISENTAN [Suspect]
     Active Substance: AMBRISENTAN
     Indication: Pulmonary arterial hypertension
     Dosage: 10 MG, QD
     Route: 065
     Dates: start: 202405
  2. REMODULIN [Suspect]
     Active Substance: TREPROSTINIL
     Indication: Pulmonary arterial hypertension
     Dosage: 49.24 NG, Q1MINUTE
     Route: 065
     Dates: start: 202306
  3. REMODULIN [Suspect]
     Active Substance: TREPROSTINIL
     Dosage: 49.24 NG, Q1MINUTE
     Route: 065
     Dates: start: 202406

REACTIONS (2)
  - Pneumonia [Not Recovered/Not Resolved]
  - Infusion site infection [Not Recovered/Not Resolved]

NARRATIVE: CASE EVENT DATE: 20240623
